FAERS Safety Report 8482093-8 (Version None)
Quarter: 2012Q3

REPORT INFORMATION
  Report Type: 
  Country: None (occurrence: None)
  Receive Date: 20120702
  Receipt Date: 20120626
  Transmission Date: 20120928
  Serious: Yes (Other)
  Sender: FDA-Public Use
  Company Number: CA-PFIZER INC-2012067141

PATIENT
  Age: 35 Year
  Sex: Male

DRUGS (1)
  1. VENLAFAXINE HCL [Suspect]
     Dosage: UNK

REACTIONS (4)
  - OSTEOPOROSIS [None]
  - FRACTURE [None]
  - FALL [None]
  - CONFUSIONAL STATE [None]
